FAERS Safety Report 21756193 (Version 3)
Quarter: 2024Q1

REPORT INFORMATION
  Report Type: Report from Study
  Country: US (occurrence: US)
  Receive Date: 20221220
  Receipt Date: 20240308
  Transmission Date: 20240409
  Serious: Yes (Hospitalization, Other)
  Sender: FDA-Public Use
  Company Number: US-JAZZ-2022-US-036290

PATIENT
  Age: 69 Year
  Sex: Female

DRUGS (9)
  1. XYWAV [Suspect]
     Active Substance: CALCIUM OXYBATE\MAGNESIUM OXYBATE\POTASSIUM OXYBATE\SODIUM OXYBATE
     Indication: Hypersomnia
     Dosage: 2.25 GRAM, BID
     Dates: start: 20221114
  2. XYWAV [Suspect]
     Active Substance: CALCIUM OXYBATE\MAGNESIUM OXYBATE\POTASSIUM OXYBATE\SODIUM OXYBATE
     Dosage: 3.75 GRAM, BID
     Dates: start: 20221201
  3. XYWAV [Suspect]
     Active Substance: CALCIUM OXYBATE\MAGNESIUM OXYBATE\POTASSIUM OXYBATE\SODIUM OXYBATE
     Dosage: 4.5 GRAM, BID
  4. XYWAV [Suspect]
     Active Substance: CALCIUM OXYBATE\MAGNESIUM OXYBATE\POTASSIUM OXYBATE\SODIUM OXYBATE
     Dosage: 3.25 GRAM, QD
  5. XYWAV [Suspect]
     Active Substance: CALCIUM OXYBATE\MAGNESIUM OXYBATE\POTASSIUM OXYBATE\SODIUM OXYBATE
     Dosage: 4G ONCE A NIGHT
  6. XYWAV [Suspect]
     Active Substance: CALCIUM OXYBATE\MAGNESIUM OXYBATE\POTASSIUM OXYBATE\SODIUM OXYBATE
     Dosage: 4.5 GRAM, QD
  7. XYWAV [Suspect]
     Active Substance: CALCIUM OXYBATE\MAGNESIUM OXYBATE\POTASSIUM OXYBATE\SODIUM OXYBATE
     Dosage: 4.25 GRAM FOR FIRST DOSE THEN 1.5 GRAM FOR SECOND DOSE
  8. XYWAV [Suspect]
     Active Substance: CALCIUM OXYBATE\MAGNESIUM OXYBATE\POTASSIUM OXYBATE\SODIUM OXYBATE
     Dosage: UNK
  9. PHENTERMINE [Concomitant]
     Active Substance: PHENTERMINE
     Indication: Product used for unknown indication
     Dosage: UNK
     Dates: start: 20230317

REACTIONS (24)
  - Pneumonia [Recovering/Resolving]
  - Influenza [Unknown]
  - Hypoglycaemia [Unknown]
  - Unevaluable event [Unknown]
  - Thinking abnormal [Unknown]
  - Blood glucose increased [Unknown]
  - Adverse reaction [Unknown]
  - Constipation [Unknown]
  - Fatigue [Unknown]
  - Disorientation [Unknown]
  - Blood pressure systolic increased [Unknown]
  - Hypopnoea [Recovered/Resolved]
  - Feeling abnormal [Unknown]
  - Balance disorder [Unknown]
  - Malaise [Unknown]
  - Vomiting [Unknown]
  - Anxiety [Unknown]
  - Drug intolerance [Unknown]
  - Muscle tension dysphonia [Unknown]
  - Drug ineffective [Unknown]
  - Drug titration error [Unknown]
  - Product administration interrupted [Unknown]
  - Intentional product use issue [Unknown]
  - Product preparation issue [Unknown]

NARRATIVE: CASE EVENT DATE: 20221201
